FAERS Safety Report 18047729 (Version 1)
Quarter: 2020Q3

REPORT INFORMATION
  Report Type: Spontaneous
  Country: US (occurrence: US)
  Receive Date: 20200720
  Receipt Date: 20200720
  Transmission Date: 20201103
  Serious: Yes (Hospitalization)
  Sender: FDA-Public Use
  Company Number: None

PATIENT
  Age: 56 Year
  Sex: Female

DRUGS (15)
  1. DISOPYRAMIDE [Concomitant]
     Active Substance: DISOPYRAMIDE
  2. HYSOCYAMINE [Concomitant]
  3. LEVOTHYROXINE. [Concomitant]
     Active Substance: LEVOTHYROXINE
  4. SIMVASTATIN. [Concomitant]
     Active Substance: SIMVASTATIN
  5. DULOXETINE. [Concomitant]
     Active Substance: DULOXETINE
  6. CYCLOBENZAPRINE. [Concomitant]
     Active Substance: CYCLOBENZAPRINE
  7. FENOFIBRATE. [Concomitant]
     Active Substance: FENOFIBRATE
  8. RANOLAZINE. [Concomitant]
     Active Substance: RANOLAZINE
  9. PREGABALIN. [Concomitant]
     Active Substance: PREGABALIN
  10. ENBREL [Suspect]
     Active Substance: ETANERCEPT
     Indication: RHEUMATOID ARTHRITIS
     Route: 058
     Dates: start: 20161004
  11. HYDROXYZ PAM [Concomitant]
     Active Substance: HYDROXYZINE PAMOATE
  12. ROPINIROLE. [Concomitant]
     Active Substance: ROPINIROLE
  13. ASPIRIN. [Concomitant]
     Active Substance: ASPIRIN
  14. METOPROLOL. [Concomitant]
     Active Substance: METOPROLOL
  15. NORTRIPTYLIN [Concomitant]
     Active Substance: NORTRIPTYLINE

REACTIONS (1)
  - Myocardial infarction [None]

NARRATIVE: CASE EVENT DATE: 20200709
